FAERS Safety Report 5332000-1 (Version None)
Quarter: 2007Q2

REPORT INFORMATION
  Report Type: 
  Country: None (occurrence: None)
  Receive Date: 20070523
  Receipt Date: 20070515
  Transmission Date: 20071010
  Serious: Yes (Other)
  Sender: FDA-Public Use
  Company Number: PHEH2006US13740

PATIENT
  Age: 46 Year
  Sex: Male
  Weight: 81.632 kg

DRUGS (4)
  1. ZOMETA [Suspect]
     Indication: MULTIPLE MYELOMA
     Dosage: 4MG  Q4WKS
     Dates: start: 20060612, end: 20060710
  2. THALIDOMIDE [Concomitant]
     Dosage: 20 MG, QD
     Dates: start: 20060601, end: 20060701
  3. DECADRON #1 [Concomitant]
     Indication: MULTIPLE MYELOMA
     Dosage: 40MG DAILY 4DAYS ON/4 DAYS OFF
     Dates: start: 20060601, end: 20060730
  4. DECADRON #1 [Concomitant]
     Dosage: 40MG ONCE WEEKLY
     Dates: start: 20060901

REACTIONS (4)
  - LOOSE TOOTH [None]
  - ORAL SOFT TISSUE DISORDER [None]
  - OSTEONECROSIS [None]
  - PAIN IN JAW [None]
